FAERS Safety Report 5986935-7 (Version None)
Quarter: 2008Q4

REPORT INFORMATION
  Report Type: 
  Country: None (occurrence: None)
  Receive Date: 20081126
  Receipt Date: 20080319
  Transmission Date: 20090506
  Serious: Yes (Hospitalization)
  Sender: FDA-Public Use
  Company Number: 2008BH002570

PATIENT
  Age: 20 Year
  Sex: Female

DRUGS (9)
  1. DIANEAL [Suspect]
     Indication: PERITONEAL DIALYSIS
     Dosage: 20 L; 5X A WEEK; IP
     Route: 033
     Dates: start: 20080101
  2. NORVASC [Concomitant]
  3. VASOTEC [Concomitant]
  4. IRON [Concomitant]
  5. CALCITRIOL [Concomitant]
  6. FOLIC ACID [Concomitant]
  7. ZANTAC [Concomitant]
  8. CALCIUM CARBONATE [Concomitant]
  9. HEXAVITAMIN [Concomitant]

REACTIONS (1)
  - HYPERTENSION [None]
